FAERS Safety Report 25749530 (Version 1)
Quarter: 2025Q3

REPORT INFORMATION
  Report Type: Spontaneous
  Country: US (occurrence: US)
  Receive Date: 20250902
  Receipt Date: 20250902
  Transmission Date: 20251021
  Serious: No
  Sender: AMGEN
  Company Number: US-AMGEN-USASP2025168224

PATIENT
  Age: 39 Year
  Sex: Male

DRUGS (3)
  1. REPATHA [Suspect]
     Active Substance: EVOLOCUMAB
     Indication: Product used for unknown indication
     Dosage: UNK, Q2WK
     Route: 065
  2. ARCALYST [Suspect]
     Active Substance: RILONACEPT
     Indication: Pericarditis
     Dosage: 160 MILLIGRAM/2ML, QWK
     Route: 065
  3. ARCALYST [Suspect]
     Active Substance: RILONACEPT
     Route: 065

REACTIONS (6)
  - Inflammation [Recovered/Resolved]
  - Musculoskeletal chest pain [Recovered/Resolved]
  - Feeling hot [Unknown]
  - Infection [Recovered/Resolved]
  - Fatigue [Recovering/Resolving]
  - Upper respiratory tract infection [Unknown]

NARRATIVE: CASE EVENT DATE: 20250101
